FAERS Safety Report 15772204 (Version 1)
Quarter: 2018Q4

REPORT INFORMATION
  Report Type: Spontaneous
  Country: US (occurrence: US)
  Receive Date: 20181228
  Receipt Date: 20181228
  Transmission Date: 20190205
  Serious: No
  Sender: FDA-Public Use
  Company Number: US-SA-2018SA394738

PATIENT
  Sex: Male

DRUGS (1)
  1. KEVZARA [Suspect]
     Active Substance: SARILUMAB
     Indication: POLYARTHRITIS
     Dosage: 200 MG, QOW
     Route: 058
     Dates: start: 20181130

REACTIONS (1)
  - Injection site reaction [Unknown]
